FAERS Safety Report 10686069 (Version 4)
Quarter: 2015Q2

REPORT INFORMATION
  Report Type: Spontaneous
  Country: US (occurrence: US)
  Receive Date: 20141231
  Receipt Date: 20150611
  Transmission Date: 20150821
  Serious: No
  Sender: FDA-Public Use
  Company Number: US-PFIZER INC-2014361929

PATIENT
  Age: 71 Year
  Sex: Female

DRUGS (2)
  1. NICOTROL [Suspect]
     Active Substance: NICOTINE
     Indication: SMOKING CESSATION THERAPY
     Dosage: UNK
     Dates: start: 1998
  2. NICOTROL [Suspect]
     Active Substance: NICOTINE
     Dosage: UNK

REACTIONS (6)
  - Agitation [Unknown]
  - Product packaging issue [Unknown]
  - Product container issue [Unknown]
  - Anger [Unknown]
  - Screaming [Unknown]
  - Drug ineffective [Unknown]
